FAERS Safety Report 10074696 (Version 2)
Quarter: 2014Q2

REPORT INFORMATION
  Report Type: Spontaneous
  Country: US (occurrence: US)
  Receive Date: 20140414
  Receipt Date: 20140414
  Transmission Date: 20141212
  Serious: Yes (Other)
  Sender: FDA-Public Use
  Company Number: US-JNJFOC-20131111626

PATIENT
  Sex: Female

DRUGS (28)
  1. TOPAMAX [Suspect]
     Indication: MIGRAINE
     Route: 048
     Dates: start: 20020502, end: 20021010
  2. TOPAMAX [Suspect]
     Indication: MIGRAINE
     Route: 048
     Dates: start: 20020104, end: 20020322
  3. TOPAMAX [Suspect]
     Indication: HEADACHE
     Route: 048
     Dates: start: 20020502, end: 20021010
  4. TOPAMAX [Suspect]
     Indication: HEADACHE
     Route: 048
     Dates: start: 20020104, end: 20020322
  5. TOPAMAX [Suspect]
     Indication: ANXIETY
     Route: 048
     Dates: start: 20020502, end: 20021010
  6. TOPAMAX [Suspect]
     Indication: ANXIETY
     Route: 048
     Dates: start: 20020104, end: 20020322
  7. TOPAMAX [Suspect]
     Indication: DEPRESSION
     Route: 048
     Dates: start: 20020502, end: 20021010
  8. TOPAMAX [Suspect]
     Indication: DEPRESSION
     Route: 048
     Dates: start: 20020104, end: 20020322
  9. ZOLOFT [Suspect]
     Indication: ANXIETY
     Route: 048
  10. ZOLOFT [Suspect]
     Indication: DEPRESSION
     Route: 048
  11. DOXEPIN [Suspect]
     Indication: PRODUCT USED FOR UNKNOWN INDICATION
     Route: 048
  12. MECLIZINE [Suspect]
     Indication: PRODUCT USED FOR UNKNOWN INDICATION
     Route: 048
  13. HYDROXYZINE PAMOATE [Suspect]
     Indication: PRODUCT USED FOR UNKNOWN INDICATION
     Route: 048
  14. ZITHROMAX [Suspect]
     Indication: PRODUCT USED FOR UNKNOWN INDICATION
     Route: 065
  15. ZYRTEC [Suspect]
     Route: 048
  16. ZYRTEC [Suspect]
     Indication: PRODUCT USED FOR UNKNOWN INDICATION
     Route: 048
  17. SULFAMETHOXAZOLE/TRIMETHOPRIM [Suspect]
     Indication: PRODUCT USED FOR UNKNOWN INDICATION
     Route: 065
  18. AMITRIPTYLINE HCL [Suspect]
     Indication: PRODUCT USED FOR UNKNOWN INDICATION
     Route: 065
  19. PRIMACARE [Suspect]
     Indication: PRODUCT USED FOR UNKNOWN INDICATION
     Route: 065
  20. ERY-TAB [Suspect]
     Indication: PRODUCT USED FOR UNKNOWN INDICATION
     Route: 048
  21. AMOXICILLIN [Suspect]
     Indication: FURUNCLE
     Route: 065
  22. SPIRONOLACTONE [Suspect]
     Indication: PRODUCT USED FOR UNKNOWN INDICATION
     Route: 065
  23. IBUPROFEN [Suspect]
     Indication: PRODUCT USED FOR UNKNOWN INDICATION
     Route: 065
  24. PHENAZOPYRIDINE [Suspect]
     Indication: PRODUCT USED FOR UNKNOWN INDICATION
     Route: 048
  25. MAXALT [Suspect]
     Indication: MIGRAINE
     Route: 048
  26. FERROUS SULFATE [Concomitant]
     Indication: PRODUCT USED FOR UNKNOWN INDICATION
     Route: 048
  27. IRON [Concomitant]
     Indication: PRODUCT USED FOR UNKNOWN INDICATION
     Route: 065
  28. PRENATAL VITAMINS [Concomitant]
     Indication: PRODUCT USED FOR UNKNOWN INDICATION
     Route: 065

REACTIONS (5)
  - Exposure during pregnancy [Recovered/Resolved]
  - Twin pregnancy [Recovered/Resolved]
  - Pre-eclampsia [Recovered/Resolved]
  - Off label use [Unknown]
  - Emotional disorder [Unknown]
